FAERS Safety Report 21821776 (Version 2)
Quarter: 2023Q2

REPORT INFORMATION
  Report Type: Report from Study
  Country: US (occurrence: US)
  Receive Date: 20230105
  Receipt Date: 20230427
  Transmission Date: 20230721
  Serious: No
  Sender: FDA-Public Use
  Company Number: US-ABBVIE-4231366

PATIENT
  Sex: Female

DRUGS (1)
  1. HUMIRA [Suspect]
     Active Substance: ADALIMUMAB
     Indication: Hidradenitis
     Route: 058
     Dates: start: 20161026

REACTIONS (6)
  - Intertrigo [Recovering/Resolving]
  - Menopause [Recovering/Resolving]
  - Hot flush [Recovering/Resolving]
  - Hyperhidrosis [Recovering/Resolving]
  - Diabetes mellitus [Recovering/Resolving]
  - Dry skin [Recovering/Resolving]
